FAERS Safety Report 5753145-8 (Version None)
Quarter: 2008Q2

REPORT INFORMATION
  Report Type: 
  Country: None (occurrence: None)
  Receive Date: 20080530
  Receipt Date: 20080520
  Transmission Date: 20081010
  Serious: Yes (Other)
  Sender: FDA-Public Use
  Company Number: US-JNJFOC-20080504285

PATIENT
  Sex: Male
  Weight: 93.44 kg

DRUGS (11)
  1. FENTANYL TRANSDERMAL SYSTEM [Suspect]
     Route: 062
  2. FENTANYL TRANSDERMAL SYSTEM [Suspect]
     Indication: BACK PAIN
     Route: 062
  3. DURAGESIC-100 [Suspect]
     Route: 062
  4. DURAGESIC-100 [Suspect]
     Route: 062
  5. DURAGESIC-100 [Suspect]
     Route: 062
  6. DURAGESIC-100 [Suspect]
     Indication: BACK PAIN
     Route: 062
  7. LORTAB [Concomitant]
     Indication: PAIN
     Route: 048
  8. NEXIUM [Concomitant]
     Indication: GASTRIC DISORDER
     Route: 048
  9. VALIUM [Concomitant]
     Indication: ANXIETY
     Route: 048
  10. TRAZODONE HCL [Concomitant]
     Indication: SLEEP DISORDER
     Route: 048
  11. VYTORIN [Concomitant]
     Indication: BLOOD CHOLESTEROL
     Route: 048

REACTIONS (8)
  - DRUG INEFFECTIVE [None]
  - HYPERTENSION [None]
  - MUSCLE INJURY [None]
  - PHARMACEUTICAL PRODUCT COMPLAINT [None]
  - RHINORRHOEA [None]
  - SLEEP DISORDER [None]
  - UNEVALUABLE EVENT [None]
  - WITHDRAWAL SYNDROME [None]
